FAERS Safety Report 5342490-6 (Version None)
Quarter: 2007Q2

REPORT INFORMATION
  Report Type: 
  Country: None (occurrence: None)
  Receive Date: 20070601
  Receipt Date: 20070530
  Transmission Date: 20071010
  Serious: Yes (Other)
  Sender: FDA-Public Use
  Company Number: GB-SHR-GB-2007-005054

PATIENT
  Sex: Female

DRUGS (1)
  1. YASMIN [Suspect]
     Dosage: 1 TAB(S), 21D/28D
     Route: 048
     Dates: start: 20060901

REACTIONS (12)
  - ANXIETY [None]
  - BREAST PAIN [None]
  - CLAUSTROPHOBIA [None]
  - DEPRESSED MOOD [None]
  - DYSPNOEA [None]
  - FEAR [None]
  - FEELING ABNORMAL [None]
  - FRUSTRATION [None]
  - INSOMNIA [None]
  - LOSS OF LIBIDO [None]
  - PANIC REACTION [None]
  - SUICIDAL IDEATION [None]
